FAERS Safety Report 24845403 (Version 1)
Quarter: 2025Q1

REPORT INFORMATION
  Report Type: Spontaneous
  Country: GB (occurrence: GB)
  Receive Date: 20250115
  Receipt Date: 20250115
  Transmission Date: 20250409
  Serious: Yes (Hospitalization)
  Sender: VERTEX
  Company Number: GB-VERTEX PHARMACEUTICALS-2025-000545

PATIENT
  Sex: Male

DRUGS (11)
  1. IVACAFTOR\TEZACAFTOR [Suspect]
     Active Substance: IVACAFTOR\TEZACAFTOR
     Indication: Cystic fibrosis
     Route: 048
  2. BECLOMETHASONE\FORMOTEROL [Concomitant]
     Active Substance: BECLOMETHASONE\FORMOTEROL
  3. BECLOMETHASONE DIPROPIONATE [Concomitant]
     Active Substance: BECLOMETHASONE DIPROPIONATE
  4. CALCIUM [Concomitant]
     Active Substance: CALCIUM
  5. ADCAL [Concomitant]
  6. ITRACONAZOLE [Concomitant]
     Active Substance: ITRACONAZOLE
  7. PARAVIT CF [Concomitant]
  8. PREDNISOLONE [Concomitant]
     Active Substance: PREDNISOLONE
     Dosage: 5 MG, QD
  9. SALINE [Concomitant]
     Active Substance: SODIUM CHLORIDE
  10. SODIUM [Concomitant]
     Active Substance: SODIUM
  11. ALBUTEROL [Concomitant]
     Active Substance: ALBUTEROL

REACTIONS (3)
  - Catheter management [Unknown]
  - Dyspnoea at rest [Unknown]
  - Infection [Unknown]

NARRATIVE: CASE EVENT DATE: 20241201
